FAERS Safety Report 18202957 (Version 5)
Quarter: 2025Q4

REPORT INFORMATION
  Report Type: Spontaneous
  Country: EU (occurrence: None)
  Receive Date: 20200827
  Receipt Date: 20251027
  Transmission Date: 20260117
  Serious: Yes (Hospitalization, Other)
  Sender: ENDO
  Company Number: EU-ENDO PHARMACEUTICALS INC-2020-005761

PATIENT
  Age: 22 Year
  Sex: Female

DRUGS (1)
  1. AVEED [Suspect]
     Active Substance: TESTOSTERONE UNDECANOATE
     Indication: Transgender hormonal therapy
     Dosage: 250 MILLIGRAM, BIWEEKLY

REACTIONS (2)
  - Susac^s syndrome [Recovering/Resolving]
  - Off label use [Unknown]
